FAERS Safety Report 21664798 (Version 1)
Quarter: 2022Q4

REPORT INFORMATION
  Report Type: Spontaneous
  Country: US (occurrence: None)
  Receive Date: 20221130
  Receipt Date: 20221130
  Transmission Date: 20230112
  Serious: No
  Sender: FDA-Public Use
  Company Number: None

PATIENT
  Age: 17 Year
  Weight: 72.12 kg

DRUGS (1)
  1. MESNEX [Suspect]
     Active Substance: MESNA
     Indication: Bone cancer
     Dosage: FREQUENCY : EVERY 4 HOURS;?
     Route: 048
     Dates: start: 2022

REACTIONS (1)
  - Lung operation [None]
